FAERS Safety Report 5009914-5 (Version None)
Quarter: 2006Q2

REPORT INFORMATION
  Report Type: 
  Country: None (occurrence: None)
  Receive Date: 20060522
  Receipt Date: 20060511
  Transmission Date: 20061013
  Serious: Yes (Hospitalization)
  Sender: FDA-Public Use
  Company Number: 2006S1000098

PATIENT
  Sex: Male

DRUGS (1)
  1. INOMAX [Suspect]
     Indication: POLLUTION
     Dosage: CONT
     Dates: start: 20060401, end: 20060401

REACTIONS (5)
  - CHEST DISCOMFORT [None]
  - DEVICE MALFUNCTION [None]
  - DYSPNOEA [None]
  - INJURY [None]
  - PAIN [None]
